FAERS Safety Report 17980788 (Version 1)
Quarter: 2020Q3

REPORT INFORMATION
  Report Type: Spontaneous
  Country: CN (occurrence: CN)
  Receive Date: 20200704
  Receipt Date: 20200704
  Transmission Date: 20201103
  Serious: Yes (Other)
  Sender: FDA-Public Use
  Company Number: CN-ROCHE-2635154

PATIENT
  Age: 83 Year
  Sex: Female

DRUGS (16)
  1. TOFACITINIB [Concomitant]
     Active Substance: TOFACITINIB
     Indication: RHEUMATOID ARTHRITIS
     Route: 048
     Dates: start: 201911
  2. METHYLPREDNISOLONE. [Concomitant]
     Active Substance: METHYLPREDNISOLONE
     Route: 048
     Dates: start: 201709
  3. METHYLPREDNISOLONE. [Concomitant]
     Active Substance: METHYLPREDNISOLONE
     Route: 048
     Dates: start: 20200201
  4. HYDROXYCHLOROQUINE [Concomitant]
     Active Substance: HYDROXYCHLOROQUINE
     Route: 048
     Dates: start: 201709
  5. HYDROXYCHLOROQUINE [Concomitant]
     Active Substance: HYDROXYCHLOROQUINE
     Route: 048
     Dates: start: 202004
  6. METHYLPREDNISOLONE. [Concomitant]
     Active Substance: METHYLPREDNISOLONE
     Route: 048
     Dates: start: 20190501
  7. METHYLPREDNISOLONE. [Concomitant]
     Active Substance: METHYLPREDNISOLONE
     Route: 048
     Dates: start: 20200401
  8. METHOTREXATE. [Concomitant]
     Active Substance: METHOTREXATE
     Indication: RHEUMATOID ARTHRITIS
     Route: 048
     Dates: start: 201810
  9. CELECOXIB. [Concomitant]
     Active Substance: CELECOXIB
     Route: 048
     Dates: start: 201709
  10. IGURATIMOD [Concomitant]
     Active Substance: IGURATIMOD
     Route: 048
     Dates: start: 201709
  11. IGURATIMOD [Concomitant]
     Active Substance: IGURATIMOD
     Route: 065
     Dates: start: 201907
  12. PAEONIA SPP. [Concomitant]
     Indication: RHEUMATOID ARTHRITIS
     Route: 048
     Dates: start: 201705
  13. ZOLEDRONIC ACID INJECTION [Concomitant]
     Active Substance: ZOLEDRONIC ACID
     Indication: OSTEOPOROSIS
     Route: 041
     Dates: start: 201709
  14. ACTEMRA [Suspect]
     Active Substance: TOCILIZUMAB
     Indication: RHEUMATOID ARTHRITIS
     Route: 065
     Dates: start: 201811
  15. METHYLPREDNISOLONE. [Concomitant]
     Active Substance: METHYLPREDNISOLONE
     Route: 048
     Dates: start: 20190401
  16. BETAMETHASONE. [Concomitant]
     Active Substance: BETAMETHASONE
     Indication: RHEUMATOID ARTHRITIS
     Route: 065
     Dates: start: 202004

REACTIONS (10)
  - Fall [Unknown]
  - Radius fracture [Unknown]
  - Anaemia [Unknown]
  - Interstitial lung disease [Unknown]
  - Pancytopenia [Unknown]
  - Peripheral arterial occlusive disease [Unknown]
  - Joint dislocation [Unknown]
  - Ulcer [Unknown]
  - Hepatitis B surface antibody positive [Unknown]
  - Blood albumin decreased [Unknown]
